FAERS Safety Report 25703819 (Version 1)
Quarter: 2025Q3

REPORT INFORMATION
  Report Type: Spontaneous
  Country: CA (occurrence: CA)
  Receive Date: 20250820
  Receipt Date: 20250820
  Transmission Date: 20251020
  Serious: Yes (Other)
  Sender: CELLTRION
  Company Number: CA-CELLTRION INC.-2025CA028012

PATIENT

DRUGS (11)
  1. INFLIXIMAB [Suspect]
     Active Substance: INFLIXIMAB
     Indication: Psoriatic arthropathy
     Route: 042
  2. INFLIXIMAB [Suspect]
     Active Substance: INFLIXIMAB
     Route: 042
  3. INFLIXIMAB [Suspect]
     Active Substance: INFLIXIMAB
     Route: 042
  4. INFLIXIMAB [Suspect]
     Active Substance: INFLIXIMAB
     Route: 042
  5. INFLIXIMAB [Suspect]
     Active Substance: INFLIXIMAB
     Route: 042
  6. FOLIC ACID [Concomitant]
     Active Substance: FOLIC ACID
  7. METHOTREXATE [Concomitant]
     Active Substance: METHOTREXATE
     Indication: Psoriatic arthropathy
     Dosage: 1.0 DOSAGE FORM EVERY 1 WEEKS
     Route: 058
  8. PREMARIN [Concomitant]
     Active Substance: ESTROGENS, CONJUGATED
  9. RAMIPRIL [Concomitant]
     Active Substance: RAMIPRIL
  10. SULFASALAZINE [Concomitant]
     Active Substance: SULFASALAZINE
     Indication: Psoriatic arthropathy
     Route: 065
  11. SYNTHROID [Concomitant]
     Active Substance: LEVOTHYROXINE SODIUM

REACTIONS (7)
  - Glycosylated haemoglobin increased [Not Recovered/Not Resolved]
  - Rheumatoid arthritis [Not Recovered/Not Resolved]
  - Hepatic enzyme increased [Not Recovered/Not Resolved]
  - Herpes zoster [Not Recovered/Not Resolved]
  - Intentional product use issue [Not Recovered/Not Resolved]
  - Off label use [Not Recovered/Not Resolved]
  - Overdose [Unknown]
